FAERS Safety Report 23445632 (Version 2)
Quarter: 2024Q2

REPORT INFORMATION
  Report Type: Spontaneous
  Country: US (occurrence: US)
  Receive Date: 20240126
  Receipt Date: 20240426
  Transmission Date: 20240716
  Serious: Yes (Other)
  Sender: FDA-Public Use
  Company Number: US-BRISTOL-MYERS SQUIBB COMPANY-2024-012207

PATIENT
  Sex: Female

DRUGS (2)
  1. OPDIVO [Suspect]
     Active Substance: NIVOLUMAB
     Indication: Malignant melanoma
     Dates: start: 202311
  2. OPDIVO [Suspect]
     Active Substance: NIVOLUMAB
     Dates: start: 20231215

REACTIONS (6)
  - Diarrhoea [Unknown]
  - Eczema [Unknown]
  - Panic attack [Unknown]
  - Electrocardiogram abnormal [Unknown]
  - Hypersensitivity [Unknown]
  - Myocardial infarction [Unknown]
